FAERS Safety Report 12639439 (Version 1)
Quarter: 2016Q3

REPORT INFORMATION
  Report Type: Spontaneous
  Country: DE (occurrence: DE)
  Receive Date: 20160810
  Receipt Date: 20160810
  Transmission Date: 20161109
  Serious: Yes (Hospitalization)
  Sender: FDA-Public Use
  Company Number: DE-009507513-1608DEU004937

PATIENT
  Age: 17 Year
  Sex: Female

DRUGS (3)
  1. NOXAFIL [Suspect]
     Active Substance: POSACONAZOLE
     Dosage: 300 MG, TWICE A DAY
     Route: 042
     Dates: start: 20160803
  2. NOXAFIL [Suspect]
     Active Substance: POSACONAZOLE
     Dosage: 300 MG, ONCE A DAY
     Route: 042
     Dates: end: 20160803
  3. NOXAFIL [Suspect]
     Active Substance: POSACONAZOLE
     Indication: ASPERGILLUS INFECTION
     Dosage: 300 MG, TWICE A DAY
     Route: 042
     Dates: start: 20160728

REACTIONS (2)
  - Drug level decreased [Not Recovered/Not Resolved]
  - Product use issue [Unknown]

NARRATIVE: CASE EVENT DATE: 2016
